FAERS Safety Report 9899312 (Version 4)
Quarter: 2014Q2

REPORT INFORMATION
  Report Type: Spontaneous
  Country: CA (occurrence: CA)
  Receive Date: 20140214
  Receipt Date: 20140626
  Transmission Date: 20141212
  Serious: Yes (Hospitalization, Other)
  Sender: FDA-Public Use
  Company Number: CA-SANOFI-AVENTIS-2013SA087955

PATIENT
  Age: 68 Year
  Sex: Female
  Weight: 111 kg

DRUGS (20)
  1. TAXOTERE [Suspect]
     Indication: BREAST CANCER METASTATIC
     Route: 042
     Dates: start: 20130823
  2. TAXOTERE [Suspect]
     Indication: BREAST CANCER METASTATIC
     Route: 042
     Dates: start: 20130823
  3. PERJETA [Suspect]
     Indication: HER-2 POSITIVE BREAST CANCER
     Route: 042
     Dates: start: 20130822
  4. PERJETA [Suspect]
     Indication: HER-2 POSITIVE BREAST CANCER
     Route: 042
     Dates: start: 20130821
  5. HERCEPTIN [Suspect]
     Indication: BREAST CANCER METASTATIC
     Route: 065
     Dates: start: 200912
  6. HERCEPTIN [Suspect]
     Indication: BREAST CANCER METASTATIC
     Route: 042
     Dates: start: 20130823
  7. DEXAMETHASONE [Suspect]
     Indication: PRODUCT USED FOR UNKNOWN INDICATION
     Route: 048
     Dates: start: 201309
  8. ANTINEOPLASTIC AGENTS [Suspect]
     Indication: PRODUCT USED FOR UNKNOWN INDICATION
     Route: 065
     Dates: start: 200901, end: 200905
  9. CHOLESTEROL- AND TRIGLYCERIDE REDUCERS [Concomitant]
     Route: 048
  10. PAXIL [Concomitant]
     Route: 048
     Dates: start: 2009
  11. CLONAZEPAM [Concomitant]
     Route: 048
     Dates: start: 2009
  12. VITAMIN B COMPLEX [Concomitant]
     Dosage: 10 YEARS AGO NOS
  13. CELEBREX [Concomitant]
  14. CRESTOR [Concomitant]
     Dosage: 10 YEARS AGO NOS
  15. MULTIVITAMIN AND MINERAL SUPPLEMENT [Concomitant]
     Indication: MACULAR DEGENERATION
     Dosage: 5 YEARS AGO NOS
  16. LEUKERAN [Concomitant]
  17. PANTOLOC [Concomitant]
     Indication: GASTROOESOPHAGEAL REFLUX DISEASE
     Route: 048
     Dates: start: 2013
  18. XGEVA [Concomitant]
  19. ZESTORETIC [Concomitant]
     Dosage: 20 YESR AGO NOS
  20. VITAMIN C [Concomitant]
     Dosage: 20 YEARS AGO

REACTIONS (31)
  - Face oedema [Not Recovered/Not Resolved]
  - Hyperhidrosis [Unknown]
  - Neuralgia [Not Recovered/Not Resolved]
  - Headache [Unknown]
  - Dry skin [Not Recovered/Not Resolved]
  - Dyspnoea [Not Recovered/Not Resolved]
  - Diarrhoea [Recovered/Resolved]
  - Dry mouth [Unknown]
  - Dry skin [Unknown]
  - Stomatitis [Recovered/Resolved]
  - Abdominal pain upper [Recovered/Resolved]
  - Flushing [Unknown]
  - Fatigue [Not Recovered/Not Resolved]
  - Bone pain [Recovered/Resolved]
  - Haemorrhoids [Unknown]
  - Injection site extravasation [Unknown]
  - Muscle spasms [Recovered/Resolved]
  - Nausea [Recovered/Resolved]
  - Vomiting [Recovered/Resolved]
  - Myalgia [Not Recovered/Not Resolved]
  - Dyspepsia [Unknown]
  - Cough [Unknown]
  - Weight decreased [Unknown]
  - Anxiety [Unknown]
  - Fracture [Unknown]
  - Kidney infection [Recovered/Resolved]
  - Paraesthesia [Not Recovered/Not Resolved]
  - Red blood cell count decreased [Unknown]
  - Bone cancer [Unknown]
  - Constipation [Unknown]
  - Hypoaesthesia [Unknown]
